FAERS Safety Report 5606354-2 (Version None)
Quarter: 2008Q1

REPORT INFORMATION
  Report Type: 
  Country: None (occurrence: None)
  Receive Date: 20080129
  Receipt Date: 20070720
  Transmission Date: 20080703
  Serious: No
  Sender: FDA-Public Use
  Company Number: A0665385A

PATIENT
  Age: 50 Year
  Sex: Male

DRUGS (1)
  1. WELLBUTRIN [Suspect]
     Indication: DEPRESSION
     Dosage: 50MG TWICE PER DAY
     Route: 048
     Dates: start: 20070716

REACTIONS (1)
  - EJACULATION DELAYED [None]
